FAERS Safety Report 8169434-6 (Version None)
Quarter: 2012Q1

REPORT INFORMATION
  Report Type: 
  Country: None (occurrence: None)
  Receive Date: 20120222
  Receipt Date: 20120213
  Transmission Date: 20120608
  Serious: Yes (Hospitalization)
  Sender: FDA-Public Use
  Company Number: 2012000023

PATIENT
  Age: 83 Year
  Sex: Female

DRUGS (12)
  1. AMIODARONE HCL [Concomitant]
  2. OMEPRAZOLE BIOGARAN (OMEPRAZOLE) [Concomitant]
  3. NEXIUM (ESOMEPREZOLE MAGNESIUM) [Concomitant]
  4. ACEON [Suspect]
     Indication: HYPERTENSION
     Dosage: 5 MG, QD, ORAL
     Route: 048
     Dates: end: 20111121
  5. ESIDRIX [Suspect]
     Indication: HYPERTENSION
     Dosage: 12.5 MG, QD, ORAL
     Route: 048
     Dates: end: 20111121
  6. LERCANIDIPINE [Concomitant]
  7. DICLOFENAC SODIUM [Suspect]
     Indication: BACK PAIN
     Dosage: 50 MG, TID, ORAL
     Route: 048
     Dates: start: 20111118, end: 20111121
  8. IRBESARTAN [Suspect]
     Indication: HYPERTENSION
     Dosage: 150 MG, QD, ORAL
     Route: 048
     Dates: end: 20111121
  9. ASPIRIN [Concomitant]
  10. ACETAMINOPHEN [Concomitant]
  11. FORLAX (MACROGOL) [Concomitant]
  12. COLTRAMYL (THIOCOLCHICOSIDE) [Concomitant]

REACTIONS (9)
  - DEHYDRATION [None]
  - DIARRHOEA [None]
  - BLOOD SODIUM DECREASED [None]
  - DRUG INTERACTION [None]
  - RENAL FAILURE ACUTE [None]
  - DECREASED APPETITE [None]
  - VOMITING [None]
  - BACK PAIN [None]
  - BLOOD GLUCOSE INCREASED [None]
